FAERS Safety Report 14492578 (Version 1)
Quarter: 2018Q1

REPORT INFORMATION
  Report Type: Spontaneous
  Country: US (occurrence: US)
  Receive Date: 20180206
  Receipt Date: 20180206
  Transmission Date: 20180509
  Serious: Yes (Other)
  Sender: FDA-Public Use
  Company Number: US-ASTELLAS-2018US006002

PATIENT
  Age: 54 Year
  Sex: Male

DRUGS (1)
  1. LEXISCAN [Suspect]
     Active Substance: REGADENOSON
     Indication: SCAN MYOCARDIAL PERFUSION
     Dosage: UNK, UNKNOWN FREQ.
     Route: 065

REACTIONS (3)
  - Blood pressure systolic decreased [Recovered/Resolved]
  - Feeling drunk [Recovered/Resolved]
  - Unresponsive to stimuli [Recovered/Resolved]
